FAERS Safety Report 5893364-3 (Version None)
Quarter: 2008Q3

REPORT INFORMATION
  Report Type: 
  Country: None (occurrence: None)
  Receive Date: 20080922
  Receipt Date: 20080922
  Transmission Date: 20090109
  Serious: Yes (Life-Threatening)
  Sender: FDA-Public Use
  Company Number: None

PATIENT
  Age: 50 Year
  Sex: Female
  Weight: 90.7194 kg

DRUGS (2)
  1. FENTANYL [Suspect]
     Indication: MENINGITIS
     Dosage: Q EVERY OTHER DAY IM
     Route: 030
     Dates: start: 20080901, end: 20080920
  2. FENTANYL [Suspect]
     Dosage: QEVERY OTHER DAY IM
     Route: 030

REACTIONS (6)
  - CHEST PAIN [None]
  - COMA [None]
  - MALAISE [None]
  - MIGRAINE [None]
  - NAUSEA [None]
  - PHARMACEUTICAL PRODUCT COMPLAINT [None]
